FAERS Safety Report 12585914 (Version 1)
Quarter: 2016Q3

REPORT INFORMATION
  Report Type: Other
  Country: JP (occurrence: JP)
  Receive Date: 20160725
  Receipt Date: 20160725
  Transmission Date: 20161109
  Serious: Yes (Other)
  Sender: FDA-Public Use
  Company Number: JP-ACTELION-A-CH2016-139405

PATIENT
  Sex: Male

DRUGS (4)
  1. EPOPROSTENOL SODIUM. [Concomitant]
     Active Substance: EPOPROSTENOL SODIUM
     Indication: PULMONARY HYPERTENSION
  2. TADALAFIL [Concomitant]
     Active Substance: TADALAFIL
  3. NITRIC OXIDE. [Concomitant]
     Active Substance: NITRIC OXIDE
  4. TRACLEER [Suspect]
     Active Substance: BOSENTAN
     Indication: PULMONARY HYPERTENSION
     Route: 048

REACTIONS (5)
  - Concomitant disease aggravated [Unknown]
  - Tracheomalacia [Unknown]
  - Cardio-respiratory arrest [Unknown]
  - Infection [Unknown]
  - Pulmonary hypertension [Unknown]
